FAERS Safety Report 9051285 (Version 1)
Quarter: 2013Q1

REPORT INFORMATION
  Report Type: Spontaneous
  Country: IT (occurrence: IT)
  Receive Date: 20130206
  Receipt Date: 20130206
  Transmission Date: 20140127
  Serious: Yes (Life-Threatening)
  Sender: FDA-Public Use
  Company Number: PHHY2013IT009668

PATIENT
  Age: 71 Year
  Sex: Female

DRUGS (5)
  1. COMBISARTAN [Suspect]
     Indication: HYPERTENSION
     Dosage: 1 DF, (320 MG VALS/ 25 MG HCTZ), DAILY
     Route: 048
     Dates: start: 20100501, end: 20130113
  2. METFORMIN [Suspect]
     Indication: TYPE 2 DIABETES MELLITUS
     Dosage: 2 G, DAILY
     Route: 048
     Dates: start: 20100501, end: 20130113
  3. LANOXIN [Suspect]
     Indication: CARDIAC FAILURE
     Dosage: 1 DF, DAILY
     Route: 048
     Dates: start: 20121001, end: 20130113
  4. ALLOPURINOL [Concomitant]
  5. FUROSEMIDE [Concomitant]
     Route: 048

REACTIONS (2)
  - Multi-organ failure [Recovering/Resolving]
  - Pancreatitis acute [Recovering/Resolving]
